FAERS Safety Report 19092162 (Version 2)
Quarter: 2021Q2

REPORT INFORMATION
  Report Type: Report from Study
  Country: CA (occurrence: CA)
  Receive Date: 20210405
  Receipt Date: 20210412
  Transmission Date: 20210717
  Serious: Yes (Other)
  Sender: FDA-Public Use
  Company Number: CA-JNJFOC-20210358759

PATIENT
  Age: 17 Year
  Sex: Female

DRUGS (3)
  1. REMICADE [Suspect]
     Active Substance: INFLIXIMAB
     Dosage: ON 06?APR?2021, THE PATIENT RECEIVED 4TH 400 MG INFLIXIMAB INFUSION.
     Route: 042
  2. REMICADE [Suspect]
     Active Substance: INFLIXIMAB
     Dosage: 7 MG /KG WEEK 2 RELOADING THEN Q 4 WEEKS
     Route: 042
     Dates: start: 20210330
  3. REMICADE [Suspect]
     Active Substance: INFLIXIMAB
     Indication: CROHN^S DISEASE
     Route: 042
     Dates: start: 20210205

REACTIONS (5)
  - Drug level decreased [Unknown]
  - Weight decreased [Unknown]
  - Crohn^s disease [Unknown]
  - Off label use [Unknown]
  - Product use issue [Unknown]

NARRATIVE: CASE EVENT DATE: 2021
